FAERS Safety Report 16063758 (Version 1)
Quarter: 2019Q1

REPORT INFORMATION
  Report Type: Spontaneous
  Country: US (occurrence: US)
  Receive Date: 20190312
  Receipt Date: 20190312
  Transmission Date: 20190418
  Serious: Yes (Hospitalization)
  Sender: FDA-Public Use
  Company Number: US-ELI_LILLY_AND_COMPANY-US201903001721

PATIENT
  Sex: Male

DRUGS (8)
  1. ACETAMINOPHEN. [Concomitant]
     Active Substance: ACETAMINOPHEN
     Indication: ANALGESIC THERAPY
     Dosage: UNK, PRN
  2. HYDROCODONE [Concomitant]
     Active Substance: HYDROCODONE
     Indication: ANALGESIC THERAPY
     Dosage: UNK, PRN
  3. FISH OIL [Concomitant]
     Active Substance: FISH OIL
     Indication: ANTIINFLAMMATORY THERAPY
  4. CELEBREX [Concomitant]
     Active Substance: CELECOXIB
     Indication: ANTIINFLAMMATORY THERAPY
     Dosage: 200 MG, UNKNOWN
     Route: 065
  5. TURMERIC [CURCUMA LONGA RHIZOME] [Concomitant]
     Active Substance: HERBALS\TURMERIC
     Indication: ANTIINFLAMMATORY THERAPY
  6. IRON [Concomitant]
     Active Substance: IRON
     Indication: SUPPLEMENTATION THERAPY
  7. OLUMIANT [Suspect]
     Active Substance: BARICITINIB
     Indication: ARTHRITIS
     Dosage: 2 MG, UNKNOWN
     Dates: start: 20181204, end: 20190221
  8. CURCUMEN [Concomitant]
     Indication: ANTIINFLAMMATORY THERAPY

REACTIONS (2)
  - Pulmonary embolism [Not Recovered/Not Resolved]
  - Cardiomyopathy [Not Recovered/Not Resolved]

NARRATIVE: CASE EVENT DATE: 20190221
